FAERS Safety Report 6343097-4 (Version None)
Quarter: 2009Q3

REPORT INFORMATION
  Report Type: 
  Country: None (occurrence: None)
  Receive Date: 20090908
  Receipt Date: 20090831
  Transmission Date: 20100115
  Serious: Yes (Life-Threatening, Hospitalization)
  Sender: FDA-Public Use
  Company Number: FR-BAYER-200926029GPV

PATIENT
  Age: 25 Year
  Sex: Female
  Weight: 85 kg

DRUGS (3)
  1. YAZ [Suspect]
     Indication: ORAL CONTRACEPTION
     Route: 048
     Dates: start: 20090304, end: 20090325
  2. LUTENYL [Concomitant]
     Indication: MENORRHAGIA
  3. TARDYFERON [Concomitant]
     Indication: IRON DEFICIENCY

REACTIONS (6)
  - IDIOPATHIC THROMBOCYTOPENIC PURPURA [None]
  - LEUKOPENIA [None]
  - NEUTROPENIA [None]
  - PETECHIAE [None]
  - SPONTANEOUS HAEMATOMA [None]
  - THROMBOCYTOPENIA [None]
